FAERS Safety Report 8600725-8 (Version None)
Quarter: 2012Q3

REPORT INFORMATION
  Report Type: 
  Country: None (occurrence: None)
  Receive Date: 20120803
  Receipt Date: 20120723
  Transmission Date: 20120928
  Serious: Yes (Other)
  Sender: FDA-Public Use
  Company Number: 2012-01129

PATIENT
  Sex: Female

DRUGS (1)
  1. LEVETIRACETAM [Suspect]
     Indication: CONVULSION
     Dosage: UNKNOWN

REACTIONS (8)
  - DRUG INEFFECTIVE [None]
  - MATERNAL EXPOSURE DURING PREGNANCY [None]
  - MYOCLONUS [None]
  - PSYCHIATRIC SYMPTOM [None]
  - PREGNANCY [None]
  - ANXIETY [None]
  - FATIGUE [None]
  - GRAND MAL CONVULSION [None]
